FAERS Safety Report 6207797-9 (Version None)
Quarter: 2009Q2

REPORT INFORMATION
  Report Type: 
  Country: None (occurrence: None)
  Receive Date: 20090522
  Receipt Date: 20090514
  Transmission Date: 20091009
  Serious: Yes (Hospitalization)
  Sender: FDA-Public Use
  Company Number: 2009005215

PATIENT
  Age: 62 Year
  Sex: Female

DRUGS (2)
  1. MODAFINIL [Suspect]
     Indication: HYPERSOMNIA
     Dosage: ORAL
  2. CYCLOSPORINE [Suspect]

REACTIONS (1)
  - LEUKAEMIA RECURRENT [None]
